FAERS Safety Report 14287445 (Version 1)
Quarter: 2017Q4

REPORT INFORMATION
  Report Type: Report from Study
  Country: US (occurrence: US)
  Receive Date: 20171214
  Receipt Date: 20171214
  Transmission Date: 20180321
  Serious: Yes (Hospitalization)
  Sender: FDA-Public Use
  Company Number: US-BRISTOL-MYERS SQUIBB COMPANY-BMS-2017-073661

PATIENT
  Age: 80 Year
  Sex: Male
  Weight: 74.3 kg

DRUGS (2)
  1. URELUMAB [Suspect]
     Active Substance: URELUMAB
     Indication: BLADDER CANCER
     Dosage: 8 MG, UNK
     Route: 042
     Dates: start: 20170525, end: 20170622
  2. NIVOLUMAB [Suspect]
     Active Substance: NIVOLUMAB
     Indication: BLADDER CANCER
     Dosage: 210 MG, UNK
     Route: 042
     Dates: start: 20170525, end: 20170706

REACTIONS (1)
  - Hyponatraemia [Recovering/Resolving]

NARRATIVE: CASE EVENT DATE: 20170814
